FAERS Safety Report 8223577-7 (Version None)
Quarter: 2012Q1

REPORT INFORMATION
  Report Type: 
  Country: None (occurrence: None)
  Receive Date: 20120321
  Receipt Date: 20120316
  Transmission Date: 20120608
  Serious: No
  Sender: FDA-Public Use
  Company Number: US-PFIZER INC-2012070065

PATIENT
  Age: 68 Year
  Sex: Female
  Weight: 46.712 kg

DRUGS (2)
  1. XALKORI [Suspect]
     Indication: LUNG ADENOCARCINOMA
     Dosage: 250 MG, 2X/DAY
     Route: 048
     Dates: start: 20120201, end: 20120101
  2. MORPHINE [Concomitant]
     Indication: PAIN
     Dosage: UNK

REACTIONS (1)
  - DYSPHAGIA [None]
